FAERS Safety Report 5301468-9 (Version None)
Quarter: 2007Q2

REPORT INFORMATION
  Report Type: 
  Country: None (occurrence: None)
  Receive Date: 20070412
  Receipt Date: 20070201
  Transmission Date: 20071010
  Serious: Yes (Death, Hospitalization)
  Sender: FDA-Public Use
  Company Number: CLOF-10442

PATIENT
  Age: 5 Year
  Sex: Female
  Weight: 12.3 kg

DRUGS (12)
  1. CLOFARABINE [Suspect]
     Indication: ACUTE LYMPHOCYTIC LEUKAEMIA
     Dosage: 18 MG QD X 5; IV
     Route: 042
     Dates: start: 20061017, end: 20061021
  2. CLOFARABINE [Suspect]
     Indication: ACUTE LYMPHOCYTIC LEUKAEMIA
     Dosage: 18 MG QD; IV
     Route: 042
     Dates: start: 20061120, end: 20061124
  3. CLOFARABINE [Suspect]
     Indication: ACUTE LYMPHOCYTIC LEUKAEMIA
     Dosage: 18 MG QD;IV
     Route: 042
     Dates: start: 20061227, end: 20061230
  4. ETOPOSIDE [Suspect]
     Indication: ACUTE LYMPHOCYTIC LEUKAEMIA
     Dosage: 60 MG QD X 5;IV
     Route: 042
     Dates: start: 20061017, end: 20061021
  5. ETOPOSIDE [Suspect]
     Indication: ACUTE LYMPHOCYTIC LEUKAEMIA
     Dosage: 60 MG QD;IV
     Route: 042
     Dates: start: 20061120, end: 20061124
  6. ETOPOSIDE [Suspect]
     Indication: ACUTE LYMPHOCYTIC LEUKAEMIA
     Dosage: 60 MG QD;IV
     Route: 042
     Dates: start: 20061227, end: 20061230
  7. CYCLOPHOSPHAMIDE [Suspect]
     Indication: ACUTE LYMPHOCYTIC LEUKAEMIA
     Dosage: 268 MG QD X 5;IV
     Route: 042
     Dates: start: 20061018, end: 20061022
  8. CYCLOPHOSPHAMIDE [Suspect]
     Dosage: 268 MG QD;IV
     Route: 042
     Dates: start: 20061120, end: 20061124
  9. CYCLOPHOSPHAMIDE [Suspect]
     Indication: ACUTE LYMPHOCYTIC LEUKAEMIA
     Dosage: 268 MG QD;IV
     Route: 042
     Dates: start: 20061227, end: 20061230
  10. SEPTRA [Concomitant]
  11. RANITIDINE [Concomitant]
  12. FILGRASTIM [Concomitant]

REACTIONS (18)
  - ABDOMINAL DISTENSION [None]
  - ACUTE LEUKAEMIA [None]
  - ARTHROPATHY [None]
  - ASCITES [None]
  - BLAST CELL COUNT INCREASED [None]
  - CELLULITIS [None]
  - CHEST X-RAY ABNORMAL [None]
  - DISEASE PROGRESSION [None]
  - HYPOXIA [None]
  - MALAISE [None]
  - NEUTROPENIC COLITIS [None]
  - OXYGEN SATURATION DECREASED [None]
  - PLATELET COUNT DECREASED [None]
  - PLEURAL EFFUSION [None]
  - RESPIRATORY FAILURE [None]
  - TACHYCARDIA [None]
  - TACHYPNOEA [None]
  - X-RAY GASTROINTESTINAL TRACT ABNORMAL [None]
